FAERS Safety Report 4713148-9 (Version None)
Quarter: 2005Q3

REPORT INFORMATION
  Report Type: 
  Country: None (occurrence: None)
  Receive Date: 20050701
  Receipt Date: 20040610
  Transmission Date: 20060218
  Serious: Yes (Other)
  Sender: FDA-Public Use
  Company Number: 2004039209

PATIENT
  Sex: Male

DRUGS (2)
  1. ZOLOFT [Suspect]
     Indication: DEPRESSION
     Dosage: ORAL
     Route: 048
  2. ZOLOFT [Suspect]
     Indication: SUICIDAL IDEATION
     Dosage: ORAL
     Route: 048

REACTIONS (1)
  - PULMONARY HYPERTENSION [None]
